FAERS Safety Report 4402075-2 (Version None)
Quarter: 2004Q3

REPORT INFORMATION
  Report Type: 
  Country: None (occurrence: None)
  Receive Date: 20040719
  Receipt Date: 20040719
  Transmission Date: 20050211
  Serious: No
  Sender: FDA-Public Use
  Company Number: None

PATIENT
  Age: 68 Year
  Sex: Female
  Weight: 58.0604 kg

DRUGS (2)
  1. ACTONEL [Suspect]
     Indication: OSTEOPOROSIS
     Dosage: ONE PILL ONCE WEEK ORAL
     Route: 048
     Dates: start: 20040614, end: 20040713
  2. OMEPRAZOLE [Concomitant]

REACTIONS (1)
  - DYSPEPSIA [None]
